FAERS Safety Report 12439427 (Version 2)
Quarter: 2016Q3

REPORT INFORMATION
  Report Type: Spontaneous
  Country: US (occurrence: US)
  Receive Date: 20160606
  Receipt Date: 20160701
  Transmission Date: 20161109
  Serious: No
  Sender: FDA-Public Use
  Company Number: US-BAYER-2016-108880

PATIENT
  Age: 35 Year
  Sex: Male

DRUGS (1)
  1. LEVITRA [Suspect]
     Active Substance: VARDENAFIL HYDROCHLORIDE TRIHYDRATE
     Dosage: UNK
     Route: 048
     Dates: start: 20160601

REACTIONS (3)
  - Product use issue [None]
  - Erection increased [None]
  - Genital discomfort [None]

NARRATIVE: CASE EVENT DATE: 20160601
